FAERS Safety Report 10519828 (Version 2)
Quarter: 2014Q4

REPORT INFORMATION
  Report Type: Spontaneous
  Country: US (occurrence: US)
  Receive Date: 20141015
  Receipt Date: 20141026
  Transmission Date: 20150528
  Serious: Yes (Other)
  Sender: FDA-Public Use
  Company Number: US-009507513-1410USA005332

PATIENT
  Age: 73 Year
  Sex: Male
  Weight: 81.63 kg

DRUGS (1)
  1. NOXAFIL [Suspect]
     Active Substance: POSACONAZOLE
     Dosage: 200 MG, THREE TIMES A DAY
     Route: 048
     Dates: end: 20141009

REACTIONS (3)
  - Pancytopenia [Not Recovered/Not Resolved]
  - Adverse event [Unknown]
  - Laboratory test abnormal [Not Recovered/Not Resolved]

NARRATIVE: CASE EVENT DATE: 20141009
